FAERS Safety Report 4293926-3 (Version None)
Quarter: 2004Q1

REPORT INFORMATION
  Report Type: 
  Country: None (occurrence: None)
  Receive Date: 20040212
  Receipt Date: 20040212
  Transmission Date: 20041129
  Serious: Yes (Hospitalization)
  Sender: FDA-Public Use
  Company Number: None

PATIENT
  Age: 88 Year
  Sex: Male
  Weight: 51.8 kg

DRUGS (6)
  1. ASPIRIN [Suspect]
     Indication: CEREBROVASCULAR ACCIDENT
     Dosage: ASPIRIN 325 MG PO QD-NOT ENTERIC COATED
     Route: 048
  2. SINEMET [Concomitant]
  3. LIPITOR [Concomitant]
  4. SENOKOT [Concomitant]
  5. IMDUR [Concomitant]
  6. DETROL LA [Concomitant]

REACTIONS (2)
  - DUODENAL ULCER [None]
  - GASTROINTESTINAL HAEMORRHAGE [None]
